FAERS Safety Report 5968156-7 (Version None)
Quarter: 2008Q4

REPORT INFORMATION
  Report Type: 
  Country: None (occurrence: None)
  Receive Date: 20081110
  Receipt Date: 20071112
  Transmission Date: 20090506
  Serious: No
  Sender: FDA-Public Use
  Company Number: M2007-021

PATIENT

DRUGS (4)
  1. HISTAMINE HISTAMINE 6 MG/ML HOLLIST-STIER [Suspect]
     Indication: SKIN TEST POSITIVE
     Dosage: SEE IMAGE
     Dates: start: 20050101
  2. HISTAMINE HISTAMINE 6 MG/ML HOLLIST-STIER [Suspect]
     Indication: SKIN TEST POSITIVE
     Dosage: SEE IMAGE
     Dates: start: 20060101
  3. HISTAMINE HISTAMINE 6 MG/ML HOLLIST-STIER [Suspect]
  4. HISTAMINE HISTAMINE 6 MG/ML HOLLIST-STIER [Suspect]

REACTIONS (1)
  - DRUG INEFFECTIVE [None]
